FAERS Safety Report 20659333 (Version 1)
Quarter: 2022Q1

REPORT INFORMATION
  Report Type: Spontaneous
  Country: US (occurrence: US)
  Receive Date: 20220331
  Receipt Date: 20220331
  Transmission Date: 20220423
  Serious: No
  Sender: FDA-Public Use
  Company Number: US-PFIZER INC-2021763847

PATIENT
  Age: 67 Year
  Sex: Female
  Weight: 66.68 kg

DRUGS (6)
  1. IBRANCE [Suspect]
     Active Substance: PALBOCICLIB
     Indication: Breast cancer female
     Dosage: 100 MG
     Dates: start: 202104
  2. IBRANCE [Suspect]
     Active Substance: PALBOCICLIB
     Dosage: 125 MG
  3. IBRANCE [Suspect]
     Active Substance: PALBOCICLIB
     Dosage: UNK [TWO WEEKS ON AND TWO WEEKS OFF]
  4. IBRANCE [Suspect]
     Active Substance: PALBOCICLIB
     Dosage: UNK [HREE WEEKS]
  5. IBRANCE [Suspect]
     Active Substance: PALBOCICLIB
     Dosage: UNK [ON TWO WEEKS AND TWO OFF]
  6. ANASTROZOLE [Concomitant]
     Active Substance: ANASTROZOLE
     Dosage: 1 MG, DAILY

REACTIONS (5)
  - Epistaxis [Recovered/Resolved]
  - Skin exfoliation [Recovering/Resolving]
  - Stomatitis [Recovering/Resolving]
  - Mouth ulceration [Unknown]
  - Joint stiffness [Unknown]

NARRATIVE: CASE EVENT DATE: 20210401
